FAERS Safety Report 8843812 (Version 5)
Quarter: 2014Q1

REPORT INFORMATION
  Report Type: Spontaneous
  Country: US (occurrence: US)
  Receive Date: 20121016
  Receipt Date: 20140127
  Transmission Date: 20141002
  Serious: Yes (Death, Hospitalization, Disabling, Other)
  Sender: FDA-Public Use
  Company Number: US-009507513-1210USA003063

PATIENT
  Sex: Female

DRUGS (3)
  1. FOSAMAX [Suspect]
     Indication: PROPHYLAXIS
     Dosage: UNK
     Route: 048
     Dates: start: 2000, end: 200912
  2. CENTRUM SILVER [Concomitant]
     Dosage: UNK
     Dates: start: 2000
  3. CALCIUM (UNSPECIFIED) [Concomitant]
     Dosage: UNK
     Dates: start: 2000

REACTIONS (47)
  - Pathological fracture [Not Recovered/Not Resolved]
  - Open reduction of fracture [Unknown]
  - Surgery [Unknown]
  - Death [Fatal]
  - Device failure [Unknown]
  - Pulmonary embolism [Unknown]
  - Packed red blood cell transfusion [Unknown]
  - Metastases to bone [Unknown]
  - Metastases to spine [Unknown]
  - Laparotomy [Unknown]
  - Colectomy [Unknown]
  - Colitis ischaemic [Unknown]
  - Large intestine perforation [Unknown]
  - Atrial fibrillation [Recovered/Resolved]
  - Colostomy [Unknown]
  - Metastases to liver [Unknown]
  - Acidosis [Unknown]
  - Bandaemia [Unknown]
  - Pancytopenia [Unknown]
  - Leukopenia [Unknown]
  - Alkalosis [Unknown]
  - Renal failure [Unknown]
  - Haemoglobin decreased [Unknown]
  - Metastatic pain [Not Recovered/Not Resolved]
  - Dyslipidaemia [Unknown]
  - Hypertension [Unknown]
  - Hypothyroidism [Unknown]
  - Coronary artery embolism [Unknown]
  - Deep vein thrombosis [Unknown]
  - Anxiety [Unknown]
  - Neutropenia [Unknown]
  - Thrombocytopenia [Unknown]
  - Tonsillectomy [Unknown]
  - Hyperlipidaemia [Unknown]
  - Depression [Unknown]
  - Rhinoplasty [Unknown]
  - Patella fracture [Unknown]
  - Knee operation [Unknown]
  - Tooth extraction [Unknown]
  - Scoliosis [Unknown]
  - Spinal osteoarthritis [Unknown]
  - Muscle spasms [Unknown]
  - Back pain [Not Recovered/Not Resolved]
  - Constipation [Unknown]
  - Diarrhoea [Unknown]
  - Nausea [Unknown]
  - Vomiting [Unknown]
